FAERS Safety Report 4548422-2 (Version None)
Quarter: 2004Q4

REPORT INFORMATION
  Report Type: 
  Country: None (occurrence: None)
  Receive Date: 20041227
  Receipt Date: 20041015
  Transmission Date: 20050328
  Serious: Yes (Hospitalization)
  Sender: FDA-Public Use
  Company Number: 04P-163-0277618-00

PATIENT
  Age: 64 Year
  Sex: Female
  Weight: 92.5338 kg

DRUGS (5)
  1. HUMIRA [Suspect]
     Indication: RHEUMATOID ARTHRITIS
     Dosage: 40 MG , 1 IN 2 W, SUBCUTANEOUS
     Route: 058
     Dates: start: 20040101, end: 20040901
  2. METOPROLOL SUCCINATE [Concomitant]
  3. ESOMEPRAZOLE [Concomitant]
  4. SABUTAMOL [Concomitant]
  5. PREDNISONE [Concomitant]

REACTIONS (3)
  - MYOCARDIAL INFARCTION [None]
  - RESPIRATORY TRACT INFECTION [None]
  - WHITE BLOOD CELL COUNT INCREASED [None]
